FAERS Safety Report 7652492-2 (Version None)
Quarter: 2011Q3

REPORT INFORMATION
  Report Type: 
  Country: None (occurrence: None)
  Receive Date: 20110803
  Receipt Date: 20110725
  Transmission Date: 20111222
  Serious: Yes (Other)
  Sender: FDA-Public Use
  Company Number: US-ASTRAZENECA-2011SE44067

PATIENT
  Age: 48 Year
  Sex: Female

DRUGS (2)
  1. CARBOPLATIN [Suspect]
     Indication: GLIOBLASTOMA
     Route: 042
     Dates: start: 20110622, end: 20110622
  2. VANDETANIB [Suspect]
     Indication: GLIOBLASTOMA
     Route: 048
     Dates: start: 20110622

REACTIONS (1)
  - ANAEMIA [None]
